FAERS Safety Report 17432121 (Version 1)
Quarter: 2020Q1

REPORT INFORMATION
  Report Type: Report from Study
  Country: US (occurrence: US)
  Receive Date: 20200218
  Receipt Date: 20200218
  Transmission Date: 20200409
  Serious: Yes (Hospitalization)
  Sender: FDA-Public Use
  Company Number: US-GILEAD-2020-0451309

PATIENT
  Age: 87 Year
  Sex: Female

DRUGS (10)
  1. LASIX [Concomitant]
     Active Substance: FUROSEMIDE
  2. DORZOLAMIDE HYDROCHLORIDE. [Concomitant]
     Active Substance: DORZOLAMIDE HYDROCHLORIDE
  3. VITAMIN D [VITAMIN D NOS] [Concomitant]
     Active Substance: VITAMIN D NOS
  4. ALENDRONATE SODIUM. [Concomitant]
     Active Substance: ALENDRONATE SODIUM
  5. MELATONIN [Concomitant]
     Active Substance: MELATONIN
  6. LATANOPROST. [Concomitant]
     Active Substance: LATANOPROST
  7. SENNAPLUS [Concomitant]
  8. IDELALISIB [Suspect]
     Active Substance: IDELALISIB
     Indication: CHRONIC LYMPHOCYTIC LEUKAEMIA
     Dosage: 150 MG, BID
     Route: 048
     Dates: start: 20150625
  9. FISH OIL [Concomitant]
     Active Substance: FISH OIL
  10. CALTRATE D [CALCIUM;COLECALCIFEROL] [Concomitant]

REACTIONS (1)
  - Influenza [Not Recovered/Not Resolved]
